FAERS Safety Report 5389733-0 (Version None)
Quarter: 2007Q3

REPORT INFORMATION
  Report Type: 
  Country: None (occurrence: None)
  Receive Date: 20070713
  Receipt Date: 20070704
  Transmission Date: 20080115
  Serious: Yes (Disabling)
  Sender: FDA-Public Use
  Company Number: 2007-160985-NL

PATIENT
  Age: 32 Year
  Sex: Female

DRUGS (1)
  1. ETONOGESTREL [Suspect]
     Dosage: DF

REACTIONS (4)
  - ANGIOPATHY [None]
  - HEMIPLEGIA [None]
  - MENTAL DISORDER [None]
  - UNEVALUABLE EVENT [None]
